FAERS Safety Report 4365841-8 (Version None)
Quarter: 2004Q2

REPORT INFORMATION
  Report Type: 
  Country: None (occurrence: None)
  Receive Date: 20040524
  Receipt Date: 20040423
  Transmission Date: 20050107
  Serious: No
  Sender: FDA-Public Use
  Company Number: SU-2004-002317

PATIENT
  Age: 86 Year
  Sex: Female
  Weight: 55.3388 kg

DRUGS (4)
  1. BENICAR [Suspect]
     Indication: HYPERTENSION
     Dosage: 20 MG QD PO
     Route: 048
     Dates: start: 20040402, end: 20040408
  2. BENICAR [Suspect]
     Indication: HYPERTENSION
     Dosage: 20 MG QD PO
     Route: 048
     Dates: start: 20040422
  3. VITAMINS NOS [Concomitant]
  4. ASPIRIN [Concomitant]

REACTIONS (5)
  - ABDOMINAL PAIN UPPER [None]
  - DIZZINESS [None]
  - HEADACHE [None]
  - RHINITIS [None]
  - SINUSITIS [None]
